FAERS Safety Report 10350420 (Version 6)
Quarter: 2014Q4

REPORT INFORMATION
  Report Type: Report from Study
  Country: FR (occurrence: FR)
  Receive Date: 20140730
  Receipt Date: 20141103
  Transmission Date: 20150528
  Serious: Yes (Death, Hospitalization, Disabling, Other)
  Sender: FDA-Public Use
  Company Number: FR-JNJFOC-20140713301

PATIENT
  Age: 79 Year
  Sex: Female
  Weight: 72 kg

DRUGS (4)
  1. LEVOTHYROX [Concomitant]
     Active Substance: LEVOTHYROXINE
     Indication: HYPOTHYROIDISM
  2. IBRUTINIB [Suspect]
     Active Substance: IBRUTINIB
     Indication: CHRONIC LYMPHOCYTIC LEUKAEMIA
     Dosage: DATE OF LAST DOSE: 14-JUL-2014
     Route: 048
     Dates: start: 20140630, end: 20140715
  3. IBRUTINIB [Suspect]
     Active Substance: IBRUTINIB
     Indication: LYMPHOCYTIC LYMPHOMA
     Dosage: DATE OF LAST DOSE: 14-JUL-2014
     Route: 048
     Dates: start: 20140630, end: 20140715
  4. COVERAM [Concomitant]
     Active Substance: AMLODIPINE\PERINDOPRIL
     Indication: HYPERTENSION

REACTIONS (12)
  - Metastases to peritoneum [Not Recovered/Not Resolved]
  - Rash [Recovered/Resolved]
  - Skin disorder [Recovered/Resolved]
  - Pleural effusion [Not Recovered/Not Resolved]
  - Renal failure [Unknown]
  - Abdominal distension [Not Recovered/Not Resolved]
  - Chronic lymphocytic leukaemia transformation [Fatal]
  - Pleurisy [Not Recovered/Not Resolved]
  - Lung disorder [Recovered/Resolved]
  - Ascites [Not Recovered/Not Resolved]
  - Atrial fibrillation [Recovered/Resolved]
  - Intestinal obstruction [Not Recovered/Not Resolved]

NARRATIVE: CASE EVENT DATE: 20140715
